FAERS Safety Report 18449735 (Version 1)
Quarter: 2020Q4

REPORT INFORMATION
  Report Type: Spontaneous
  Country: AU (occurrence: AU)
  Receive Date: 20201102
  Receipt Date: 20201102
  Transmission Date: 20210114
  Serious: Yes (Hospitalization, Other)
  Sender: FDA-Public Use
  Company Number: AU-MICRO LABS LIMITED-ML2020-03180

PATIENT
  Age: 58 Year
  Sex: Male

DRUGS (11)
  1. PROPOFOL. [Suspect]
     Active Substance: PROPOFOL
     Indication: MYOCLONUS
  2. MORPHINE [Concomitant]
     Active Substance: MORPHINE
     Indication: SEDATION
  3. MIDAZOLAM. [Concomitant]
     Active Substance: MIDAZOLAM
     Indication: SEDATION
  4. HYDROCORTISONE. [Concomitant]
     Active Substance: HYDROCORTISONE
     Dosage: HIGH-DOSE
     Route: 042
  5. SODIUM VALPROATE [Suspect]
     Active Substance: VALPROATE SODIUM
     Indication: MYOCLONUS
  6. IPRATROPIUM [Concomitant]
     Active Substance: IPRATROPIUM
  7. CISATRACURIUM. [Concomitant]
     Active Substance: CISATRACURIUM
     Indication: MECHANICAL VENTILATION
  8. SALBUTAMOL [Concomitant]
     Active Substance: ALBUTEROL
     Route: 045
  9. LEVETIRACETAM. [Suspect]
     Active Substance: LEVETIRACETAM
     Indication: MYOCLONUS
     Dosage: VERY HIGH DOSES
  10. BENZODIAZEPINE [Suspect]
     Active Substance: BENZODIAZEPINE
     Indication: MYOCLONUS
  11. HEPARIN [Concomitant]
     Active Substance: HEPARIN SODIUM
     Dosage: 80 UNITS OF HEPARIN PER KILOGRAM BODY WEIGHT
     Route: 042

REACTIONS (1)
  - Drug ineffective [Unknown]
